FAERS Safety Report 4403968-2 (Version None)
Quarter: 2004Q3

REPORT INFORMATION
  Report Type: 
  Country: None (occurrence: None)
  Receive Date: 20040719
  Receipt Date: 20040708
  Transmission Date: 20050211
  Serious: Yes (Other)
  Sender: FDA-Public Use
  Company Number: 2004-06-1065

PATIENT
  Age: 40 Year
  Sex: Female
  Weight: 63 kg

DRUGS (4)
  1. PEG-INTRON [Suspect]
     Indication: METASTATIC MALIGNANT MELANOMA
     Dosage: 100 MCG QWK SUBCUTANEOUS
     Route: 058
     Dates: start: 20030201, end: 20030901
  2. TEMOZOLOMIDE CAPSULES [Suspect]
     Indication: METASTATIC MALIGNANT MELANOMA
     Dosage: 360 MG ORAL
     Route: 048
     Dates: start: 20030201, end: 20031201
  3. BENURON (PARACETAMOL) TABLETS [Concomitant]
  4. NAVOBAN CAPSULES [Concomitant]

REACTIONS (4)
  - ARTHRALGIA [None]
  - OESOPHAGEAL DISORDER [None]
  - RAYNAUD'S PHENOMENON [None]
  - SCLERODERMA [None]
